FAERS Safety Report 8472682-9 (Version None)
Quarter: 2012Q2

REPORT INFORMATION
  Report Type: 
  Country: None (occurrence: None)
  Receive Date: 20120627
  Receipt Date: 20120611
  Transmission Date: 20120825
  Serious: No
  Sender: FDA-Public Use
  Company Number: US-ASTRAZENECA-2012SE38956

PATIENT
  Age: 33 Year
  Sex: Female
  Weight: 111.1 kg

DRUGS (4)
  1. NEXIUM [Suspect]
     Indication: GASTROOESOPHAGEAL REFLUX DISEASE
     Route: 048
     Dates: start: 20110701
  2. CALCIUM VITAMINS [Concomitant]
     Indication: MINERAL SUPPLEMENTATION
  3. NEXIUM [Suspect]
     Route: 048
     Dates: start: 20110701, end: 20110901
  4. NEXIUM [Suspect]
     Route: 048
     Dates: start: 20111001

REACTIONS (4)
  - OESOPHAGEAL PAIN [None]
  - DYSPEPSIA [None]
  - ERUCTATION [None]
  - OFF LABEL USE [None]
